FAERS Safety Report 10032720 (Version 1)
Quarter: 2014Q1

REPORT INFORMATION
  Report Type: Spontaneous
  Country: HR (occurrence: HR)
  Receive Date: 20140324
  Receipt Date: 20140324
  Transmission Date: 20141002
  Serious: Yes (Hospitalization)
  Sender: FDA-Public Use
  Company Number: HR-GLAXOSMITHKLINE-B0978882A

PATIENT
  Age: 20 Year
  Sex: Female
  Weight: 75 kg

DRUGS (1)
  1. ACYCLOVIR [Suspect]
     Indication: HERPES SIMPLEX MENINGITIS
     Dosage: 750MG THREE TIMES PER DAY
     Route: 042
     Dates: start: 20131208

REACTIONS (4)
  - Renal tubular necrosis [Unknown]
  - Proteinuria [Unknown]
  - Blood creatine increased [Unknown]
  - Haematuria [Unknown]
